FAERS Safety Report 10453221 (Version 4)
Quarter: 2014Q4

REPORT INFORMATION
  Report Type: Spontaneous
  Country: CO (occurrence: CO)
  Receive Date: 20140915
  Receipt Date: 20141014
  Transmission Date: 20150528
  Serious: Yes (Other)
  Sender: FDA-Public Use
  Company Number: CO-PFIZER INC-2014186981

PATIENT
  Age: 17 Year
  Sex: Female

DRUGS (4)
  1. FLUOXETINE [Concomitant]
     Active Substance: FLUOXETINE\FLUOXETINE HYDROCHLORIDE
     Dosage: 20 MG, DAILY
     Route: 048
  2. PRISTIQ EXTENDED RELEASE [Suspect]
     Active Substance: DESVENLAFAXINE SUCCINATE
     Indication: DEPRESSION
     Dosage: 50 MG, DAILY
     Route: 048
     Dates: start: 201402, end: 2014
  3. OLANZAPINE. [Concomitant]
     Active Substance: OLANZAPINE
     Dosage: 5 MG, DAILY
     Route: 048
  4. PRISTIQ EXTENDED RELEASE [Suspect]
     Active Substance: DESVENLAFAXINE SUCCINATE
     Dosage: 1400 MG, UNK
     Route: 048
     Dates: start: 20140629, end: 2014

REACTIONS (6)
  - Impulsive behaviour [Unknown]
  - Abdominal pain upper [Recovered/Resolved]
  - Overdose [Unknown]
  - Self injurious behaviour [Unknown]
  - Dyspepsia [Unknown]
  - Anxiety [Unknown]

NARRATIVE: CASE EVENT DATE: 2014
